FAERS Safety Report 16826342 (Version 2)
Quarter: 2019Q3

REPORT INFORMATION
  Report Type: Spontaneous
  Country: US (occurrence: US)
  Receive Date: 20190919
  Receipt Date: 20190926
  Transmission Date: 20191005
  Serious: Yes (Other)
  Sender: FDA-Public Use
  Company Number: US-ASTRAZENECA-2018SF25627

PATIENT
  Age: 61 Year
  Sex: Male

DRUGS (21)
  1. DRONABINOL. [Concomitant]
     Active Substance: DRONABINOL
  2. TOPROL XL [Concomitant]
     Active Substance: METOPROLOL SUCCINATE
  3. PROTONIX [Suspect]
     Active Substance: PANTOPRAZOLE SODIUM
     Route: 065
     Dates: start: 1998, end: 2019
  4. LISINOPRIL. [Concomitant]
     Active Substance: LISINOPRIL
  5. KLOR-CON [Concomitant]
     Active Substance: POTASSIUM CHLORIDE
  6. ASPIRIN. [Concomitant]
     Active Substance: ASPIRIN
  7. PRILOSEC [Suspect]
     Active Substance: OMEPRAZOLE MAGNESIUM
     Indication: GASTROOESOPHAGEAL REFLUX DISEASE
     Route: 048
     Dates: start: 1998, end: 2013
  8. NITROSTAT [Concomitant]
     Active Substance: NITROGLYCERIN
  9. METOPROLOL. [Concomitant]
     Active Substance: METOPROLOL
  10. DOXYCYCLINE. [Concomitant]
     Active Substance: DOXYCYCLINE
  11. DEXILANT [Suspect]
     Active Substance: DEXLANSOPRAZOLE
     Route: 048
     Dates: start: 1998, end: 2019
  12. PROTONIX [Suspect]
     Active Substance: PANTOPRAZOLE SODIUM
     Route: 065
     Dates: start: 1998, end: 20130425
  13. ONDANSETRON [Concomitant]
     Active Substance: ONDANSETRON
  14. CLONAZEPAM. [Concomitant]
     Active Substance: CLONAZEPAM
  15. VITAMIN D2 [Concomitant]
     Active Substance: ERGOCALCIFEROL
  16. ATORVASTATIN [Concomitant]
     Active Substance: ATORVASTATIN
  17. ERGOCALCIFEROL. [Concomitant]
     Active Substance: ERGOCALCIFEROL
  18. PRILOSEC [Suspect]
     Active Substance: OMEPRAZOLE MAGNESIUM
     Indication: GASTROOESOPHAGEAL REFLUX DISEASE
     Route: 048
     Dates: start: 1998, end: 2019
  19. DEXILANT [Suspect]
     Active Substance: DEXLANSOPRAZOLE
     Route: 065
     Dates: start: 1998, end: 2019
  20. LEVOTHYROXINE. [Concomitant]
     Active Substance: LEVOTHYROXINE
  21. ALLOPURINOL. [Concomitant]
     Active Substance: ALLOPURINOL

REACTIONS (2)
  - Chronic kidney disease [Unknown]
  - Renal impairment [Unknown]

NARRATIVE: CASE EVENT DATE: 2013
